FAERS Safety Report 4714202-8 (Version None)
Quarter: 2005Q2

REPORT INFORMATION
  Report Type: 
  Country: None (occurrence: None)
  Receive Date: 20050630
  Receipt Date: 20050203
  Transmission Date: 20051028
  Serious: Yes (Hospitalization)
  Sender: FDA-Public Use
  Company Number: WAES 0502USA00438

PATIENT
  Age: 48 Year
  Sex: Female

DRUGS (1)
  1. HYZAAR [Suspect]
     Dosage: 50/12.5 MG/DAILY/PO
     Route: 048
     Dates: start: 20050113

REACTIONS (3)
  - FACE OEDEMA [None]
  - SKIN REACTION [None]
  - URTICARIA [None]
